FAERS Safety Report 9553545 (Version 2)
Quarter: 2013Q3

REPORT INFORMATION
  Report Type: Report from Study
  Country: US (occurrence: US)
  Receive Date: 20130925
  Receipt Date: 20130925
  Transmission Date: 20140515
  Serious: Yes (Hospitalization, Disabling, Other)
  Sender: FDA-Public Use
  Company Number: US-ABBVIE-13P-163-1112592-00

PATIENT
  Age: 89 Year
  Sex: Female
  Weight: 52.21 kg

DRUGS (18)
  1. HUMIRA [Suspect]
     Indication: RHEUMATOID ARTHRITIS
     Dates: start: 20130515, end: 20130529
  2. HUMIRA [Suspect]
     Dosage: 5 INJECTIONS SO FAR
     Dates: start: 2013
  3. PREDNISONE [Concomitant]
     Indication: RHEUMATOID ARTHRITIS
     Dosage: 10-15MG DAILY
  4. HYDROXYCHLOROQUINE [Concomitant]
     Indication: RHEUMATOID ARTHRITIS
  5. SULFASALAZINE [Concomitant]
     Indication: RHEUMATOID ARTHRITIS
  6. CALCIUM [Concomitant]
     Indication: BONE DISORDER
  7. IRON [Concomitant]
     Indication: PRODUCT USED FOR UNKNOWN INDICATION
  8. MULTIVITAMIN [Concomitant]
     Indication: VITAMIN SUPPLEMENTATION
  9. ZINC [Concomitant]
     Indication: IMMUNE SYSTEM DISORDER
  10. TRAMADOL [Concomitant]
     Indication: PRODUCT USED FOR UNKNOWN INDICATION
  11. PROPANOLOL [Concomitant]
     Indication: BLOOD PRESSURE ABNORMAL
  12. PROPANOLOL [Concomitant]
     Indication: TREMOR
  13. PROPANOLOL [Concomitant]
     Indication: HYPERTENSION
  14. VITAMIN D [Concomitant]
     Indication: TREMOR
  15. VITAMIN D [Concomitant]
     Indication: VITAMIN SUPPLEMENTATION
  16. TYLENOL [Concomitant]
     Indication: PRODUCT USED FOR UNKNOWN INDICATION
  17. FERROUS SULFATE [Concomitant]
     Indication: PRODUCT USED FOR UNKNOWN INDICATION
  18. GABAPENTIN [Concomitant]
     Indication: NEURALGIA

REACTIONS (16)
  - Asthenia [Unknown]
  - Arthralgia [Unknown]
  - Oedema peripheral [Unknown]
  - Hypertension [Unknown]
  - Mobility decreased [Unknown]
  - Activities of daily living impaired [Unknown]
  - Medication error [Unknown]
  - Drug dose omission [Unknown]
  - Mobility decreased [Not Recovered/Not Resolved]
  - Drug ineffective [Not Recovered/Not Resolved]
  - Arthralgia [Not Recovered/Not Resolved]
  - Dementia [Not Recovered/Not Resolved]
  - General physical health deterioration [Not Recovered/Not Resolved]
  - Bedridden [Unknown]
  - Pain [Unknown]
  - Rheumatoid arthritis [Unknown]
